FAERS Safety Report 6366936-X (Version None)
Quarter: 2009Q3

REPORT INFORMATION
  Report Type: 
  Country: None (occurrence: None)
  Receive Date: 20090915
  Receipt Date: 20090902
  Transmission Date: 20100115
  Serious: Yes (Other)
  Sender: FDA-Public Use
  Company Number: FR-000845

PATIENT
  Age: 11 Year
  Sex: Male

DRUGS (1)
  1. MINIRIN [Suspect]
     Indication: ENURESIS
     Dosage: 20 UG, NASAL
     Route: 045
     Dates: end: 20090901

REACTIONS (8)
  - ABDOMINAL PAIN [None]
  - AGITATION [None]
  - EXPIRED DRUG ADMINISTERED [None]
  - HEADACHE [None]
  - HYPERHIDROSIS [None]
  - NAUSEA [None]
  - OFF LABEL USE [None]
  - VERTIGO [None]
